FAERS Safety Report 10194736 (Version 3)
Quarter: 2014Q2

REPORT INFORMATION
  Report Type: Report from Study
  Country: TW (occurrence: TW)
  Receive Date: 20140526
  Receipt Date: 20140606
  Transmission Date: 20141212
  Serious: Yes (Hospitalization, Other)
  Sender: FDA-Public Use
  Company Number: TW-BRISTOL-MYERS SQUIBB COMPANY-19579184

PATIENT
  Age: 37 Year
  Sex: Male

DRUGS (1)
  1. ORENCIA [Suspect]
     Route: 042
     Dates: start: 20130116, end: 20131008

REACTIONS (3)
  - Bronchitis [Recovered/Resolved]
  - Pulmonary tuberculosis [Unknown]
  - Anaemia [Unknown]
